FAERS Safety Report 16678370 (Version 1)
Quarter: 2019Q3

REPORT INFORMATION
  Report Type: Report from Study
  Country: GB (occurrence: GB)
  Receive Date: 20190807
  Receipt Date: 20190807
  Transmission Date: 20191004
  Serious: Yes (Hospitalization)
  Sender: FDA-Public Use
  Company Number: GB-B.I. PHARMACEUTICALS,INC./RIDGEFIELD-2019-BI-030066

PATIENT
  Age: 42 Year
  Sex: Male
  Weight: 75 kg

DRUGS (9)
  1. AFATINIB [Suspect]
     Active Substance: AFATINIB
     Indication: CHORDOMA
     Route: 048
     Dates: start: 20190701
  2. OXETACAINE [Concomitant]
     Active Substance: OXETHAZAINE
     Indication: MOUTH ULCERATION
     Route: 061
     Dates: start: 20190710
  3. DIFFLAM [Concomitant]
     Active Substance: BENZYDAMINE HYDROCHLORIDE
     Indication: MOUTH ULCERATION
     Route: 061
     Dates: start: 20190710
  4. AFATINIB [Suspect]
     Active Substance: AFATINIB
     Route: 048
     Dates: start: 20190717
  5. CODEINE [Concomitant]
     Active Substance: CODEINE
     Route: 048
     Dates: start: 20190710
  6. CODEINE [Concomitant]
     Active Substance: CODEINE
     Indication: ORAL PAIN
     Dosage: DAILY DOSE: 30-60/ MILLIGRAM
     Route: 048
     Dates: start: 20190710
  7. FORTISIP [Concomitant]
     Active Substance: CARBOHYDRATES\FATTY ACIDS\MINERALS\PROTEIN\VITAMINS
     Indication: MOUTH ULCERATION
     Dosage: DAILY DOSE 3 BOTTLES
     Route: 048
  8. OXETACAINE [Concomitant]
     Active Substance: OXETHAZAINE
     Route: 048
  9. DIFFLAM [Concomitant]
     Active Substance: BENZYDAMINE HYDROCHLORIDE
     Route: 061
     Dates: start: 20190710

REACTIONS (4)
  - Dizziness [Not Recovered/Not Resolved]
  - Hypopituitarism [Recovered/Resolved]
  - Fall [Recovered/Resolved]
  - Face injury [Not Recovered/Not Resolved]

NARRATIVE: CASE EVENT DATE: 20190710
